FAERS Safety Report 4431417-7 (Version None)
Quarter: 2004Q3

REPORT INFORMATION
  Report Type: 
  Country: None (occurrence: None)
  Receive Date: 20040824
  Receipt Date: 20040818
  Transmission Date: 20050211
  Serious: Yes (Life-Threatening, Hospitalization, Disabling)
  Sender: FDA-Public Use
  Company Number: US-GLAXOSMITHKLINE-A0522660A

PATIENT
  Age: 43 Year
  Sex: Male

DRUGS (2)
  1. PAXIL [Suspect]
     Indication: BIPOLAR II DISORDER
     Dosage: 10MG PER DAY
     Route: 048
  2. DEPAKOTE [Concomitant]

REACTIONS (10)
  - DIZZINESS [None]
  - DRUG WITHDRAWAL SYNDROME [None]
  - FEELING ABNORMAL [None]
  - INSOMNIA [None]
  - INTENTIONAL SELF-INJURY [None]
  - JOINT INJURY [None]
  - NAUSEA [None]
  - PARAESTHESIA [None]
  - SUICIDE ATTEMPT [None]
  - TINNITUS [None]
